FAERS Safety Report 6579432-1 (Version None)
Quarter: 2010Q1

REPORT INFORMATION
  Report Type: 
  Country: None (occurrence: None)
  Receive Date: 20100212
  Receipt Date: 20100203
  Transmission Date: 20100710
  Serious: Yes (Death)
  Sender: FDA-Public Use
  Company Number: JP-BRISTOL-MYERS SQUIBB COMPANY-14960579

PATIENT
  Age: 54 Year
  Sex: Male

DRUGS (7)
  1. ABILIFY [Suspect]
     Indication: SCHIZOPHRENIA
     Route: 048
     Dates: start: 20090915, end: 20100120
  2. ABILIFY [Suspect]
     Indication: DEPRESSION
     Route: 048
     Dates: start: 20090915, end: 20100120
  3. RISPERDAL [Suspect]
     Dosage: GRANULE; REGIMEN 2- 1.67 TID
     Route: 048
  4. LULLAN [Suspect]
     Dosage: TABS
     Route: 048
  5. AKINETON [Concomitant]
     Dosage: GRANULE
     Route: 048
  6. DEPAS [Concomitant]
     Dosage: GRANULE
     Route: 048
  7. RHYTHMY [Concomitant]
     Dosage: TAB

REACTIONS (1)
  - SUDDEN DEATH [None]
